FAERS Safety Report 12517726 (Version 1)
Quarter: 2016Q2

REPORT INFORMATION
  Report Type: Spontaneous
  Country: US (occurrence: US)
  Receive Date: 20160630
  Receipt Date: 20160630
  Transmission Date: 20160815
  Serious: Yes (Hospitalization, Other)
  Sender: FDA-Public Use
  Company Number: US-GLAXOSMITHKLINE-US2016092793

PATIENT
  Age: 66 Year
  Sex: Female

DRUGS (7)
  1. MELOXICAM. [Concomitant]
     Active Substance: MELOXICAM
  2. ESOMEPRAZOLE [Concomitant]
     Active Substance: ESOMEPRAZOLE
  3. CLINDAMYCIN [Concomitant]
     Active Substance: CLINDAMYCIN\CLINDAMYCIN PHOSPHATE
  4. FURSEMIDE [Concomitant]
  5. GLIPIZIDE. [Concomitant]
     Active Substance: GLIPIZIDE
  6. LOSARTAN. [Concomitant]
     Active Substance: LOSARTAN
  7. VENTOLIN HFA [Suspect]
     Active Substance: ALBUTEROL SULFATE
     Indication: PULMONARY CONGESTION
     Dosage: 2 PUFF(S), TID
     Route: 055
     Dates: start: 20160425

REACTIONS (21)
  - Investigation [Unknown]
  - Overdose [Unknown]
  - Fear [Not Recovered/Not Resolved]
  - Dyspnoea [Unknown]
  - Fall [Unknown]
  - Hypertension [Recovered/Resolved]
  - Nervousness [Not Recovered/Not Resolved]
  - Dysphagia [Recovered/Resolved]
  - Muscle disorder [Recovered/Resolved]
  - Panic attack [Recovered/Resolved]
  - Fear [Unknown]
  - Tremor [Unknown]
  - Choking [Recovered/Resolved]
  - Sensory disturbance [Not Recovered/Not Resolved]
  - Scan parathyroid [Unknown]
  - Unresponsive to stimuli [Unknown]
  - Parathyroid disorder [Unknown]
  - Anxiety [Not Recovered/Not Resolved]
  - Crying [Unknown]
  - Malaise [Unknown]
  - Screaming [Unknown]

NARRATIVE: CASE EVENT DATE: 2016
